FAERS Safety Report 10215307 (Version 3)
Quarter: 2014Q3

REPORT INFORMATION
  Report Type: Report from Study
  Country: IE (occurrence: IE)
  Receive Date: 20140603
  Receipt Date: 20140820
  Transmission Date: 20150326
  Serious: Yes (Disabling)
  Sender: FDA-Public Use
  Company Number: PHFR2014IE003796

PATIENT
  Age: 25 Year
  Sex: Female

DRUGS (2)
  1. COLOMYCIN [Concomitant]
     Active Substance: COLISTIN
     Indication: CYSTIC FIBROSIS
     Dosage: UKN
     Route: 055
  2. TOBI PODHALER [Suspect]
     Active Substance: TOBRAMYCIN
     Indication: CYSTIC FIBROSIS
     Dosage: UKN

REACTIONS (3)
  - Gait disturbance [Unknown]
  - Device malfunction [Unknown]
  - Chest discomfort [Recovered/Resolved]

NARRATIVE: CASE EVENT DATE: 201201
